FAERS Safety Report 5659614-3 (Version None)
Quarter: 2008Q1

REPORT INFORMATION
  Report Type: 
  Country: None (occurrence: None)
  Receive Date: 20080311
  Receipt Date: 20080311
  Transmission Date: 20080703
  Serious: Yes (Other)
  Sender: FDA-Public Use
  Company Number: None

PATIENT
  Age: 32 Year
  Sex: Female
  Weight: 109.5 kg

DRUGS (2)
  1. HEPARIN [Suspect]
     Indication: ANTICOAGULANT THERAPY
     Dosage: 4000 UNIT BOLUS THREE TIMES WEEKLY HEMODIALYSIS
     Route: 010
     Dates: start: 20030626, end: 20080201
  2. HEPARIN [Suspect]
     Indication: HAEMODIALYSIS
     Dosage: 4000 UNIT BOLUS THREE TIMES WEEKLY HEMODIALYSIS
     Route: 010
     Dates: start: 20030626, end: 20080201

REACTIONS (3)
  - ANXIETY [None]
  - DYSPNOEA [None]
  - HYPOAESTHESIA ORAL [None]
